FAERS Safety Report 10768569 (Version 1)
Quarter: 2015Q1

REPORT INFORMATION
  Report Type: Spontaneous
  Country: US (occurrence: None)
  Receive Date: 20150204
  Receipt Date: 20150204
  Transmission Date: 20150721
  Serious: Yes (Hospitalization, Other)
  Sender: FDA-Public Use
  Company Number: US-ZYDUS-006468

PATIENT
  Age: 49 Year
  Sex: Male

DRUGS (1)
  1. METFORMIN [Suspect]
     Active Substance: METFORMIN HYDROCHLORIDE

REACTIONS (12)
  - Hypothermia [None]
  - Blood creatinine increased [None]
  - Angiopathy [None]
  - Blood sodium decreased [None]
  - Blood lactic acid increased [None]
  - Overdose [None]
  - Blood glucose decreased [None]
  - Toxicity to various agents [None]
  - Unresponsive to stimuli [None]
  - Haemodynamic instability [None]
  - Anuria [None]
  - Acid base balance abnormal [None]
